FAERS Safety Report 15429866 (Version 1)
Quarter: 2018Q3

REPORT INFORMATION
  Report Type: Spontaneous
  Country: US (occurrence: US)
  Receive Date: 20180920
  Receipt Date: 20180920
  Transmission Date: 20181010
  Serious: Yes (Other)
  Sender: FDA-Public Use
  Company Number: None

PATIENT
  Sex: Male
  Weight: 97.65 kg

DRUGS (5)
  1. IBUPROFEN 800 MG TABLET [Concomitant]
     Dates: start: 20180110
  2. ONDANSETRON 4 MG TABLET [Concomitant]
     Dates: start: 20171226
  3. TYLENOL EXTRA STRENGTH (ACETAMINOPHEN) 500 MG TABLET [Concomitant]
     Dates: start: 20180419
  4. MELATONIN 5 MG CAPSULE [Concomitant]
     Dates: start: 20171226
  5. BUPRENORPHINE?NALOXONE [Suspect]
     Active Substance: BUPRENORPHINE HYDROCHLORIDE\NALOXONE HYDROCHLORIDE
     Indication: DRUG DEPENDENCE
     Route: 060
     Dates: start: 20180117, end: 20180711

REACTIONS (2)
  - Headache [None]
  - Product substitution issue [None]
